FAERS Safety Report 13255159 (Version 1)
Quarter: 2017Q1

REPORT INFORMATION
  Report Type: Spontaneous
  Country: CN (occurrence: CN)
  Receive Date: 20170221
  Receipt Date: 20170221
  Transmission Date: 20170428
  Serious: Yes (Other)
  Sender: FDA-Public Use
  Company Number: CN-ASTRAZENECA-2017SE18206

PATIENT
  Age: 1178 Day
  Sex: Male
  Weight: 20 kg

DRUGS (3)
  1. TERBUTALINE SULFATE. [Suspect]
     Active Substance: TERBUTALINE SULFATE
     Indication: ASTHMA
     Route: 055
     Dates: start: 20160919, end: 20160919
  2. IPRATROPIUM BROMIDE. [Suspect]
     Active Substance: IPRATROPIUM BROMIDE
     Indication: ASTHMA
     Route: 055
     Dates: start: 20160919, end: 20160919
  3. BUDESONIDE. [Suspect]
     Active Substance: BUDESONIDE
     Indication: ASTHMA
     Route: 055
     Dates: start: 20160919, end: 20160919

REACTIONS (9)
  - Hypersensitivity [Recovering/Resolving]
  - Malaise [Unknown]
  - Peripheral coldness [Unknown]
  - Heart rate increased [Unknown]
  - Pallor [Unknown]
  - Pyrexia [Unknown]
  - Respiratory rate increased [Unknown]
  - Hypotension [Unknown]
  - Chills [Unknown]

NARRATIVE: CASE EVENT DATE: 20160919
